FAERS Safety Report 4900344-0 (Version None)
Quarter: 2006Q1

REPORT INFORMATION
  Report Type: 
  Country: None (occurrence: None)
  Receive Date: 20060203
  Receipt Date: 20060125
  Transmission Date: 20060701
  Serious: Yes (Other)
  Sender: FDA-Public Use
  Company Number: IT-GLAXOSMITHKLINE-B0408433A

PATIENT
  Age: 43 Year
  Sex: Male

DRUGS (5)
  1. ZIDOVUDINE [Suspect]
     Indication: HIV INFECTION
     Route: 065
  2. LAMIVUDINE [Suspect]
     Indication: HIV INFECTION
     Route: 065
  3. NELFINAVIR [Suspect]
     Indication: HIV INFECTION
     Route: 065
  4. FLUCONAZOLE [Concomitant]
     Indication: ANTIFUNGAL PROPHYLAXIS
     Route: 065
  5. AMPHOTERICIN B [Concomitant]
     Dosage: 1.6G CUMULATIVE DOSE
     Route: 065

REACTIONS (5)
  - BRAIN DAMAGE [None]
  - CRYPTOCOCCOSIS [None]
  - HEADACHE [None]
  - IMMUNE RECONSTITUTION SYNDROME [None]
  - PYREXIA [None]
